FAERS Safety Report 6530045-7 (Version None)
Quarter: 2010Q1

REPORT INFORMATION
  Report Type: 
  Country: None (occurrence: None)
  Receive Date: 20100104
  Receipt Date: 20091228
  Transmission Date: 20100710
  Serious: Yes (Hospitalization)
  Sender: FDA-Public Use
  Company Number: WWISSUE-383

PATIENT
  Age: 46 Year
  Sex: Female
  Weight: 65.7716 kg

DRUGS (5)
  1. CEPHALEXIN [Suspect]
     Indication: INGROWING NAIL
     Dosage: 500MG TID, PO
     Route: 048
     Dates: start: 20091206, end: 20091211
  2. LAMICTAL [Concomitant]
  3. LEXAPRO [Concomitant]
  4. REQUIP [Concomitant]
  5. ZOCOR [Concomitant]

REACTIONS (7)
  - BLOOD POTASSIUM DECREASED [None]
  - CHILLS [None]
  - DIARRHOEA [None]
  - HEADACHE [None]
  - PAIN [None]
  - PYREXIA [None]
  - VOMITING [None]
